FAERS Safety Report 22167490 (Version 1)
Quarter: 2023Q2

REPORT INFORMATION
  Report Type: Spontaneous
  Country: IT (occurrence: IT)
  Receive Date: 20230403
  Receipt Date: 20230403
  Transmission Date: 20230722
  Serious: Yes (Other)
  Sender: FDA-Public Use
  Company Number: None

PATIENT
  Age: 73 Year
  Sex: Female
  Weight: 62 kg

DRUGS (2)
  1. ABEMACICLIB [Suspect]
     Active Substance: ABEMACICLIB
     Indication: Breast cancer stage IV
     Dosage: 150 MG BID
     Route: 048
     Dates: start: 20221219, end: 20230117
  2. FULVESTRANT EVER PHARMA [Concomitant]
     Indication: Breast cancer stage IV
     Dosage: 500 MG, OTHER, EVERY 14 DAYS FOR THE FIRST 2 MONTHS, THEN EVERY 28 DAYS
     Route: 030

REACTIONS (1)
  - Erythema multiforme [Recovered/Resolved]

NARRATIVE: CASE EVENT DATE: 20230117
